FAERS Safety Report 8334997-4 (Version None)
Quarter: 2012Q2

REPORT INFORMATION
  Report Type: 
  Country: None (occurrence: None)
  Receive Date: 20120503
  Receipt Date: 20120423
  Transmission Date: 20120825
  Serious: Yes (Other)
  Sender: FDA-Public Use
  Company Number: DE-FRI-1000029739

PATIENT
  Sex: Female
  Weight: 45 kg

DRUGS (9)
  1. TORSEMIDE [Concomitant]
     Indication: HYPERTENSION
     Dates: start: 20110120
  2. ASPIRIN [Concomitant]
     Indication: CAROTID ARTERY STENOSIS
  3. SIMVASTATIN [Concomitant]
     Indication: HYPERCHOLESTEROLAEMIA
     Dates: start: 20101112
  4. ASPIRIN [Concomitant]
     Indication: ARTERIAL OCCLUSIVE DISEASE
     Dates: start: 20101112
  5. RAMIPRIL [Concomitant]
     Indication: HYPERTENSION
     Dates: start: 20100719
  6. ROFLUMILAST [Suspect]
     Indication: CHRONIC OBSTRUCTIVE PULMONARY DISEASE
     Dosage: 500 MCG
     Route: 048
     Dates: start: 20110706, end: 20110811
  7. NEBIVOLOL [Concomitant]
     Indication: HYPERTENSION
     Dates: start: 20110124
  8. SPIRIVA [Concomitant]
     Indication: CHRONIC OBSTRUCTIVE PULMONARY DISEASE
     Dates: start: 20100426
  9. SYMBICORT [Concomitant]
     Indication: CHRONIC OBSTRUCTIVE PULMONARY DISEASE
     Dates: start: 20100913

REACTIONS (1)
  - PANIC ATTACK [None]
